FAERS Safety Report 4357565-8 (Version None)
Quarter: 2004Q2

REPORT INFORMATION
  Report Type: 
  Country: None (occurrence: None)
  Receive Date: 20040510
  Receipt Date: 20040423
  Transmission Date: 20050107
  Serious: Yes (Hospitalization)
  Sender: FDA-Public Use
  Company Number: A001-002-006055

PATIENT
  Sex: Female

DRUGS (5)
  1. ARICEPT [Suspect]
     Dosage: SEE IMAGE
     Route: 048
     Dates: start: 20040201, end: 20040101
  2. ARICEPT [Suspect]
     Dosage: SEE IMAGE
     Route: 048
     Dates: start: 20040101, end: 20040201
  3. ARICEPT [Suspect]
     Dosage: SEE IMAGE
     Route: 048
     Dates: start: 20040101
  4. PRIMIDONE [Suspect]
     Dosage: ORAL; MANY YEARS
     Route: 048
  5. TEPOMAX (TOPIRAMATE) [Concomitant]

REACTIONS (6)
  - DELIRIUM [None]
  - DRUG INTERACTION [None]
  - DYSPEPSIA [None]
  - FALL [None]
  - NAUSEA [None]
  - VOMITING [None]
